FAERS Safety Report 16542005 (Version 1)
Quarter: 2019Q3

REPORT INFORMATION
  Report Type: Spontaneous
  Country: US (occurrence: US)
  Receive Date: 20190708
  Receipt Date: 20190708
  Transmission Date: 20191004
  Serious: Yes (Other)
  Sender: FDA-Public Use
  Company Number: US-BRISTOL-MYERS SQUIBB COMPANY-BMS-2019-063940

PATIENT
  Sex: Female
  Weight: 67.12 kg

DRUGS (2)
  1. OPDIVO [Suspect]
     Active Substance: NIVOLUMAB
     Indication: METASTATIC MALIGNANT MELANOMA
     Dosage: UNK UNK, Q3WK
     Route: 042
  2. YERVOY [Suspect]
     Active Substance: IPILIMUMAB
     Indication: METASTATIC MALIGNANT MELANOMA
     Dosage: UNK UNK, Q3WK
     Route: 042

REACTIONS (9)
  - Discomfort [Unknown]
  - Fatigue [Unknown]
  - Gait disturbance [Unknown]
  - Asthenia [Unknown]
  - Eye disorder [Unknown]
  - Visual impairment [Recovering/Resolving]
  - Nausea [Unknown]
  - Urticaria [Unknown]
  - Pyrexia [Unknown]
